FAERS Safety Report 15517805 (Version 1)
Quarter: 2018Q4

REPORT INFORMATION
  Report Type: Spontaneous
  Country: US (occurrence: US)
  Receive Date: 20181018
  Receipt Date: 20181018
  Transmission Date: 20190205
  Serious: Yes (Hospitalization)
  Sender: FDA-Public Use
  Company Number: None

PATIENT
  Sex: Female

DRUGS (7)
  1. TRAMADOL 50MG [Concomitant]
     Active Substance: TRAMADOL
  2. YASMIN 3-0.03MG [Concomitant]
  3. PREDNISONE 5MG [Concomitant]
     Active Substance: PREDNISONE
  4. XELJANZ [Suspect]
     Active Substance: TOFACITINIB CITRATE
     Indication: RHEUMATOID ARTHRITIS
     Route: 048
     Dates: start: 20180801, end: 20181017
  5. IBU 800MG [Concomitant]
  6. LEVOTHYROXINE 125MCG [Concomitant]
     Active Substance: LEVOTHYROXINE SODIUM
  7. BUPRENORPHINE 20MCG [Concomitant]

REACTIONS (1)
  - Drug intolerance [None]
